FAERS Safety Report 12281343 (Version 2)
Quarter: 2016Q3

REPORT INFORMATION
  Report Type: Spontaneous
  Country: US (occurrence: US)
  Receive Date: 20160419
  Receipt Date: 20160701
  Transmission Date: 20161109
  Serious: Yes (Death, Hospitalization)
  Sender: FDA-Public Use
  Company Number: US-ENDO PHARMACEUTICALS INC.-2016-002754

PATIENT
  Age: 62 Year
  Sex: Male
  Weight: 99.88 kg

DRUGS (2)
  1. ASPIRIN. [Concomitant]
     Active Substance: ASPIRIN
     Indication: CARDIOVASCULAR EVENT PROPHYLAXIS
  2. TESTIM [Suspect]
     Active Substance: TESTOSTERONE
     Indication: ANDROGEN REPLACEMENT THERAPY
     Route: 062
     Dates: start: 201312, end: 201402

REACTIONS (4)
  - Myocardial infarction [Fatal]
  - Irritability [Unknown]
  - Cardio-respiratory arrest [Fatal]
  - Erythema [Unknown]

NARRATIVE: CASE EVENT DATE: 20140425
